FAERS Safety Report 8122402-2 (Version None)
Quarter: 2012Q1

REPORT INFORMATION
  Report Type: 
  Country: None (occurrence: None)
  Receive Date: 20120208
  Receipt Date: 20111208
  Transmission Date: 20120608
  Serious: Yes (Other)
  Sender: FDA-Public Use
  Company Number: JP-GLAXOSMITHKLINE-B0768963A

PATIENT
  Sex: Female
  Weight: 55 kg

DRUGS (6)
  1. PREDNISOLONE [Concomitant]
     Indication: METASTASES TO CENTRAL NERVOUS SYSTEM
     Dosage: 1.5IUAX PER DAY
     Route: 048
     Dates: start: 20110819
  2. TYKERB [Suspect]
     Indication: BREAST CANCER
     Dosage: 1250MG PER DAY
     Route: 048
     Dates: start: 20111001
  3. MAGNESIUM SULFATE [Concomitant]
     Indication: CONSTIPATION
     Dosage: 2IUAX PER DAY
     Route: 048
     Dates: start: 20080527
  4. ISOSORBIDE DINITRATE [Concomitant]
     Indication: METASTASES TO CENTRAL NERVOUS SYSTEM
     Dosage: 90ML PER DAY
     Route: 048
     Dates: start: 20110715
  5. XELODA [Suspect]
     Route: 048
  6. LANSOPRAZOLE [Concomitant]
     Indication: GASTRIC ULCER
     Dosage: 1IUAX PER DAY
     Route: 048
     Dates: start: 20110819

REACTIONS (2)
  - OCULAR ICTERUS [None]
  - HYPERBILIRUBINAEMIA [None]
